FAERS Safety Report 9438970 (Version 1)
Quarter: 2013Q3

REPORT INFORMATION
  Report Type: Spontaneous
  Country: GB (occurrence: GB)
  Receive Date: 20130802
  Receipt Date: 20130802
  Transmission Date: 20140515
  Serious: Yes (Disabling, Other)
  Sender: FDA-Public Use
  Company Number: PHHY2013GB080422

PATIENT
  Age: 45 Year
  Sex: Male
  Weight: 60 kg

DRUGS (7)
  1. CO-CODAMOL [Suspect]
     Indication: PAIN
     Dosage: 2 DF, QID, UP TO 2 TABLETS, 4 X DAILY. TWO SMALL TABLETS GIVEN, EXACT DOSAGE UNKNOWN
     Route: 048
     Dates: start: 20130714, end: 20130714
  2. OPTICROM [Concomitant]
     Indication: SEASONAL ALLERGY
     Route: 050
  3. CETIRIZINE HYDROCHLORIDE [Concomitant]
  4. BECLOMETASONE DIPROPIONATE [Concomitant]
  5. PARACETAMOL [Concomitant]
  6. IBUPROFEN [Concomitant]
  7. STREPSILS EXTRA [Concomitant]

REACTIONS (5)
  - Paraesthesia [Recovered/Resolved]
  - Abdominal pain upper [Recovered/Resolved]
  - Tremor [Recovered/Resolved]
  - Dizziness [Recovered/Resolved]
  - Vomiting [Recovered/Resolved]
